FAERS Safety Report 8738138 (Version 2)
Quarter: 2013Q4

REPORT INFORMATION
  Report Type: Report from Study
  Country: JP (occurrence: JP)
  Receive Date: 20120823
  Receipt Date: 20131108
  Transmission Date: 20140711
  Serious: Yes (Other)
  Sender: FDA-Public Use
  Company Number: JP-009507513-2012SP012602

PATIENT
  Age: 66 Year
  Sex: Female
  Weight: 59 kg

DRUGS (9)
  1. PEGINTERFERON ALFA-2B [Suspect]
     Indication: HEPATITIS C
     Dosage: 1.5 MICROGRAM PER KILOGRAM, QW
     Route: 058
     Dates: start: 20120216
  2. REBETOL [Suspect]
     Indication: HEPATITIS C
     Dosage: 400 MG, QD
     Route: 048
     Dates: start: 20120216
  3. TELAVIC [Suspect]
     Indication: HEPATITIS C
     Dosage: 1500 MG, QD
     Route: 048
     Dates: start: 20120216, end: 20120226
  4. TELAVIC [Suspect]
     Dosage: 1000 MG, QD
     Route: 048
     Dates: start: 20120301, end: 20120311
  5. TELAVIC [Suspect]
     Dosage: 1500 MG, QD
     Route: 048
     Dates: start: 20120312, end: 20120509
  6. URSO [Concomitant]
     Indication: HEPATITIS C
     Dosage: UPDATE (09MAR2012)
     Route: 048
  7. YODEL S [Concomitant]
     Indication: CONSTIPATION
     Dosage: 80 MG, TID
     Route: 048
  8. GLAKAY [Concomitant]
     Indication: PROPHYLAXIS
     Dosage: UPDATE (09MAR2012), UPDATE (20APR2012): STOP DATE
     Route: 048
     Dates: end: 20120227
  9. MAGMITT [Concomitant]
     Indication: CONSTIPATION
     Dosage: UPDATE (09MAR2012): FORMULATION-POR
     Route: 048

REACTIONS (1)
  - Urticaria [Recovered/Resolved]
